FAERS Safety Report 8926914 (Version 1)
Quarter: 2012Q4

REPORT INFORMATION
  Report Type: 
  Country: KR (occurrence: KR)
  Receive Date: 20121127
  Receipt Date: 20121127
  Transmission Date: 20130627
  Serious: Yes (Other)
  Sender: FDA-Public Use
  Company Number: KR-UCBSA-071804

PATIENT
  Age: 59 Year
  Sex: Female

DRUGS (3)
  1. KEPPRA [Suspect]
     Indication: CONVULSION
     Route: 048
     Dates: start: 20120816, end: 2012
  2. KEPPRA [Suspect]
     Indication: CONVULSION
     Route: 048
     Dates: start: 2012
  3. TRIEPTAL [Concomitant]
     Indication: CONVULSION
     Route: 048

REACTIONS (1)
  - Leukopenia [Recovered/Resolved]
